FAERS Safety Report 6332421-4 (Version None)
Quarter: 2009Q3

REPORT INFORMATION
  Report Type: 
  Country: None (occurrence: None)
  Receive Date: 20090828
  Receipt Date: 20090821
  Transmission Date: 20100115
  Serious: Yes (Hospitalization, Other)
  Sender: FDA-Public Use
  Company Number: DE-NAPPMUNDI-DEU-2009-0005471

PATIENT
  Age: 65 Year
  Sex: Male

DRUGS (2)
  1. MORPHINE SULFATE [Suspect]
     Indication: PAIN
     Dosage: 320 MG, SINGLE
     Route: 008
  2. MORPHINE SULFATE [Suspect]
     Dosage: 10 MG, DAILY
     Route: 008

REACTIONS (4)
  - CHEST PAIN [None]
  - HEADACHE [None]
  - INCORRECT DOSE ADMINISTERED [None]
  - RESPIRATORY DEPRESSION [None]
